FAERS Safety Report 20732599 (Version 7)
Quarter: 2023Q1

REPORT INFORMATION
  Report Type: Report from Study
  Country: US (occurrence: US)
  Receive Date: 20220420
  Receipt Date: 20230215
  Transmission Date: 20230418
  Serious: Yes (Hospitalization, Other)
  Sender: FDA-Public Use
  Company Number: US-GW PHARMA-2022-US-011846

PATIENT
  Age: 5 Year
  Sex: Male

DRUGS (87)
  1. EPIDIOLEX [Suspect]
     Active Substance: CANNABIDIOL
     Indication: Lennox-Gastaut syndrome
     Dosage: UNK
     Dates: start: 20181226
  2. EPIDIOLEX [Suspect]
     Active Substance: CANNABIDIOL
     Dosage: 1.6 MILLILITER
     Dates: start: 201911
  3. EPIDIOLEX [Suspect]
     Active Substance: CANNABIDIOL
     Dosage: 2.2 MILLILITRE VIA G-TUBE
     Dates: start: 202210
  4. ACETAMINOPHEN [Concomitant]
     Active Substance: ACETAMINOPHEN
     Indication: Product used for unknown indication
     Dosage: 160 MG/ 5 ML, ORAL SUSPENSION, PRN, J TUBE, EVERY 6 HRS
  5. ACETAMINOPHEN [Concomitant]
     Active Substance: ACETAMINOPHEN
     Dosage: 325 MG RECTAL SUPPOSITORY, PRN, RECTAL, EVERY 6 HRS
  6. ACETAMINOPHEN [Concomitant]
     Active Substance: ACETAMINOPHEN
     Dosage: 160 MG/ 5 ML, ORAL SUSPENSION, PRN, J TUBE, EVERY 6 HRS
  7. ACETAMINOPHEN [Concomitant]
     Active Substance: ACETAMINOPHEN
     Dosage: 325 MG RECTAL SUPPOSITORY, PRN, RECTAL, EVERY 6 HRS
  8. ATROPINE [Concomitant]
     Active Substance: ATROPINE
     Indication: Product used for unknown indication
     Dosage: 1 DROP, PRN SUBLINGUAL DAILY
  9. ATROPINE [Concomitant]
     Active Substance: ATROPINE
     Dosage: 1 DROP, PRN SUBLINGUAL DAILY
  10. AZITHROMYCIN [Concomitant]
     Active Substance: AZITHROMYCIN
     Indication: Product used for unknown indication
     Dosage: J-TUBE, MON/WED/FRI
     Route: 048
  11. AZITHROMYCIN [Concomitant]
     Active Substance: AZITHROMYCIN
     Dosage: J-TUBE, MON/WED/FRI
     Route: 048
  12. BACLOFEN [Concomitant]
     Active Substance: BACLOFEN
     Indication: Product used for unknown indication
     Dosage: J-TUBE, TID
     Route: 048
  13. BACLOFEN [Concomitant]
     Active Substance: BACLOFEN
     Dosage: J-TUBE, TID
     Route: 048
  14. BACTROBAN [Concomitant]
     Active Substance: MUPIROCIN\MUPIROCIN CALCIUM
     Indication: Product used for unknown indication
     Dosage: PRN, TID
     Route: 061
  15. BACTROBAN [Concomitant]
     Active Substance: MUPIROCIN\MUPIROCIN CALCIUM
     Dosage: PRN, TID
     Route: 061
  16. CHOLECALCIFEROL [Concomitant]
     Active Substance: CHOLECALCIFEROL
     Dosage: 10 MCG/ML, J-TUBE DAILY
     Route: 048
  17. CHOLECALCIFEROL [Concomitant]
     Active Substance: CHOLECALCIFEROL
     Dosage: 10 MCG/ML, J-TUBE DAILY
     Route: 048
  18. CITRIC ACID MONOHYDRATE;POTASSIUM CITRATE [Concomitant]
     Indication: Product used for unknown indication
     Dosage: 334 MG-1100 MG/ 5 ML, 15 ML, J-TUBE, TID
  19. CLOBAZAM [Concomitant]
     Active Substance: CLOBAZAM
     Dosage: J-TUBE EVERY EVENING
     Route: 048
  20. CLONIDINE [Concomitant]
     Active Substance: CLONIDINE
     Indication: Product used for unknown indication
     Dosage: PRN, J-TUBE, BEDTIME
     Route: 048
  21. CLONIDINE [Concomitant]
     Active Substance: CLONIDINE
     Dosage: PRN, J-TUBE, BEDTIME
     Route: 048
  22. CULTURELLE [Concomitant]
     Active Substance: LACTOBACILLUS RHAMNOSUS
     Indication: Product used for unknown indication
     Dosage: J-TUBE, EVERY AFTERNOON
  23. CYPROHEPTADINE [Concomitant]
     Active Substance: CYPROHEPTADINE
     Indication: Product used for unknown indication
     Dosage: 2 MG/ 5 ML, G-TUBE TID
     Route: 048
  24. CYPROHEPTADINE [Concomitant]
     Active Substance: CYPROHEPTADINE
     Dosage: 2 MG/ 5 ML, G-TUBE TID
     Route: 048
  25. DESITIN [ZINC OXIDE] [Concomitant]
     Indication: Product used for unknown indication
     Dosage: PRN, TOPICAL AS DIRECTED
  26. DESITIN [ZINC OXIDE] [Concomitant]
     Dosage: PRN, TOPICAL AS DIRECTED
  27. DIAZEPAM [Concomitant]
     Active Substance: DIAZEPAM
     Indication: Product used for unknown indication
     Dosage: 5 MG/ 5 ML, PRN, J-TUBE, EVERY 4 HR
  28. DIAZEPAM [Concomitant]
     Active Substance: DIAZEPAM
     Dosage: 5 MG/ 5 ML, PRN, J-TUBE, EVERY 4 HR
  29. DIPHENHYDRAMINE [Concomitant]
     Active Substance: DIPHENHYDRAMINE
     Indication: Product used for unknown indication
     Dosage: J- TUBE, EVERY WEEK
     Route: 048
  30. DIPHENHYDRAMINE [Concomitant]
     Active Substance: DIPHENHYDRAMINE
     Dosage: PRN, J-TUBE, EVERY 6 HR
  31. DIPHENHYDRAMINE [Concomitant]
     Active Substance: DIPHENHYDRAMINE
     Dosage: J- TUBE, EVERY WEEK
     Route: 048
  32. DIPHENHYDRAMINE [Concomitant]
     Active Substance: DIPHENHYDRAMINE
     Dosage: PRN, J-TUBE, EVERY 6 HR
  33. DIURIL [CHLOROTHIAZIDE SODIUM] [Concomitant]
     Dosage: 250 MG/ 5ML, J-TUBE, BID
     Route: 048
  34. DIURIL [CHLOROTHIAZIDE SODIUM] [Concomitant]
     Dosage: 250 MG/ 5ML, J-TUBE, BID
     Route: 048
  35. ENEMEEZ [Concomitant]
     Active Substance: DOCUSATE SODIUM
     Indication: Product used for unknown indication
     Dosage: RECTAL ENMA, DAILY
  36. ENEMEEZ [Concomitant]
     Active Substance: DOCUSATE SODIUM
     Dosage: RECTAL ENMA, DAILY
  37. EPINEPHRINE [Concomitant]
     Active Substance: EPINEPHRINE
     Indication: Product used for unknown indication
     Dosage: INJCTABLE KIT, PRN, INTRAMUSCULAR
  38. EPINEPHRINE [Concomitant]
     Active Substance: EPINEPHRINE
     Dosage: INJCTABLE KIT, PRN, INTRAMUSCULAR
  39. FISH OIL [Concomitant]
     Active Substance: FISH OIL
     Indication: Product used for unknown indication
     Dosage: 1600MG/ 5 ML, J-TUBE, EVERY AFTERNOON
     Route: 048
  40. FISH OIL [Concomitant]
     Active Substance: FISH OIL
     Dosage: 1600MG/ 5 ML, J-TUBE, EVERY AFTERNOON
     Route: 048
  41. FLUTICASONE [Concomitant]
     Active Substance: FLUTICASONE
     Indication: Product used for unknown indication
     Dosage: 50 MCG/INH, NASAL SPRAY 1 SPRAYS, NASAL BEDTIME
  42. FLUTICASONE [Concomitant]
     Active Substance: FLUTICASONE
     Dosage: 50 MCG/INH, NASAL SPRAY 1 SPRAYS, NASAL BEDTIME
  43. GABAPENTIN [Concomitant]
     Active Substance: GABAPENTIN
     Indication: Product used for unknown indication
     Dosage: G-TUBE, TID, 28 MG/KG/DAY
     Route: 048
  44. GABAPENTIN [Concomitant]
     Active Substance: GABAPENTIN
     Dosage: G-TUBE, TID, 28 MG/KG/DAY
     Route: 048
  45. HIZENTRA [Concomitant]
     Active Substance: HUMAN IMMUNOGLOBULIN G
     Indication: Product used for unknown indication
     Dosage: SUBCUTANEOUS SOLUTION 6 GM, EVERY WEEK
     Route: 058
  46. HIZENTRA [Concomitant]
     Active Substance: HUMAN IMMUNOGLOBULIN G
     Dosage: SUBCUTANEOUS SOLUTION 6 GM, EVERY WEEK
     Route: 058
  47. HYDROXYZINE HYDROCHLORIDE [Concomitant]
     Active Substance: HYDROXYZINE HYDROCHLORIDE
     Indication: Product used for unknown indication
     Dosage: 10 MG/ 5 ML, J-TUBE, EVERY 6 HR
     Route: 048
  48. HYDROXYZINE HYDROCHLORIDE [Concomitant]
     Active Substance: HYDROXYZINE HYDROCHLORIDE
     Dosage: 10 MG/ 5 ML, J-TUBE, EVERY 6 HR
     Route: 048
  49. IBUPROFEN [Concomitant]
     Active Substance: IBUPROFEN
     Indication: Product used for unknown indication
     Dosage: UNK, PRN, J-TUBE, EVERY 6 HRS
  50. IBUPROFEN [Concomitant]
     Active Substance: IBUPROFEN
     Dosage: UNK, PRN, J-TUBE, EVERY 6 HRS
  51. IPRATROPIUM [Concomitant]
     Active Substance: IPRATROPIUM
     Indication: Product used for unknown indication
     Dosage: 500 MCG/ 2.5 ML, PRN, NEBULIZED INHALATION, EVERY 6 HR
  52. IPRATROPIUM [Concomitant]
     Active Substance: IPRATROPIUM
     Dosage: 500 MCG/ 2.5 ML, PRN, NEBULIZED INHALATION, EVERY 6 HR
  53. LAMICTAL [Concomitant]
     Active Substance: LAMOTRIGINE
     Indication: Product used for unknown indication
     Dosage: J-TUBE, TID, 28MG/KG/DAY
     Route: 048
  54. LANSOPRAZOLE [Concomitant]
     Active Substance: LANSOPRAZOLE
     Indication: Product used for unknown indication
     Dosage: J-TUBE, BID
     Route: 048
  55. MACRODANTIN [Concomitant]
     Active Substance: NITROFURANTOIN
     Indication: Product used for unknown indication
     Dosage: J-TUBE, DAILY
  56. MACRODANTIN [Concomitant]
     Active Substance: NITROFURANTOIN
     Dosage: J-TUBE, DAILY
  57. MACRODANTIN [Concomitant]
     Active Substance: NITROFURANTOIN
     Dosage: J-TUBE, DAILY
  58. MELATONIN [Concomitant]
     Active Substance: MELATONIN
     Indication: Product used for unknown indication
     Dosage: J-TUBE, BEDTIME
     Route: 048
  59. MELATONIN [Concomitant]
     Active Substance: MELATONIN
     Dosage: J-TUBE, BEDTIME
     Route: 048
  60. MIRTAZAPINE [Concomitant]
     Active Substance: MIRTAZAPINE
     Indication: Product used for unknown indication
     Dosage: J-TUBE, BEDTIME
     Route: 048
  61. MIRTAZAPINE [Concomitant]
     Active Substance: MIRTAZAPINE
     Dosage: J-TUBE, BEDTIME
     Route: 048
  62. MONTELUKAST [Concomitant]
     Active Substance: MONTELUKAST SODIUM
     Indication: Product used for unknown indication
     Dosage: J-TUBE, DAILY
     Route: 048
  63. MONTELUKAST [Concomitant]
     Active Substance: MONTELUKAST SODIUM
     Dosage: J-TUBE, DAILY
  64. POLYETHYLENE GLYCOL 3350 AND ELECTROLYTES [Concomitant]
     Active Substance: POLYETHYLENE GLYCOL 3350\POTASSIUM CHLORIDE\SODIUM BICARBONATE\SODIUM CHLORIDE\SODIUM SULFATE
     Indication: Product used for unknown indication
     Dosage: RECONSTITUTUION, PRN, J- TUBE DAILY
     Route: 048
  65. POLYETHYLENE GLYCOL 3350 AND ELECTROLYTES [Concomitant]
     Active Substance: POLYETHYLENE GLYCOL 3350\POTASSIUM CHLORIDE\SODIUM BICARBONATE\SODIUM CHLORIDE\SODIUM SULFATE
     Dosage: RECONSTITUTUION, PRN, J- TUBE DAILY
     Route: 048
  66. PREDNISOLONE [Concomitant]
     Active Substance: PREDNISOLONE
     Indication: Product used for unknown indication
     Dosage: 15MG/ 5 ML, PRN, J-TUBE, BID
     Route: 048
  67. PREDNISOLONE [Concomitant]
     Active Substance: PREDNISOLONE
     Dosage: 15MG/ 5 ML, PRN, J-TUBE, BID
     Route: 048
  68. SIMETHICONE (DIMETHICONE) [Concomitant]
     Active Substance: DIMETHICONE
     Dosage: 40 MG/ 0.6 ML, PRN, G-TUBE, EVERY 6 HR
     Route: 048
  69. SIMETHICONE (DIMETHICONE) [Concomitant]
     Active Substance: DIMETHICONE
     Dosage: 40 MG/ 0.6 ML, PRN, G-TUBE, EVERY 6 HR
     Route: 048
  70. SODIUM CHLORIDE [Concomitant]
     Active Substance: SODIUM CHLORIDE
     Indication: Product used for unknown indication
     Dosage: INHALATION
  71. SODIUM CHLORIDE [Concomitant]
     Active Substance: SODIUM CHLORIDE
     Dosage: INHALATION
  72. SUCRALFATE [Concomitant]
     Active Substance: SUCRALFATE
     Indication: Product used for unknown indication
     Dosage: 1 G/ 10 ML, PRN, G-TUBE, QID
     Route: 048
  73. SUCRALFATE [Concomitant]
     Active Substance: SUCRALFATE
     Dosage: 1 G/ 10 ML, PRN, G-TUBE, QID
     Route: 048
  74. SYMBICORT [Concomitant]
     Active Substance: BUDESONIDE\FORMOTEROL FUMARATE DIHYDRATE
     Indication: Product used for unknown indication
     Dosage: 160 MCG/4.5 MCG, INHALTION AEROOSOL 2 PUFFS, BID
  75. SYMBICORT [Concomitant]
     Active Substance: BUDESONIDE\FORMOTEROL FUMARATE DIHYDRATE
     Dosage: 160 MCG/4.5 MCG, INHALTION AEROOSOL 2 PUFFS, BID
  76. TOPIRAMATE [Concomitant]
     Active Substance: TOPIRAMATE
     Indication: Product used for unknown indication
     Dosage: 100 MG/100 MG/200 MG, 19 MG/KG/DAY
     Route: 048
  77. VIGABATRIN [Concomitant]
     Active Substance: VIGABATRIN
     Indication: Product used for unknown indication
     Dosage: J-TUBE, BID, 85 MG/KG/DAY
  78. ERGOCALCIFEROL\RETINOL [Concomitant]
     Active Substance: ERGOCALCIFEROL\RETINOL
     Indication: Product used for unknown indication
     Dosage: PRN
     Route: 061
  79. ASCORBIC ACID [Concomitant]
     Active Substance: ASCORBIC ACID
     Indication: Product used for unknown indication
     Dosage: J-TUBE, BID
  80. XOPENEX [Concomitant]
     Active Substance: LEVALBUTEROL HYDROCHLORIDE
     Indication: Product used for unknown indication
     Dosage: 0.63 MG/ 3 ML, PRN
  81. ZINC [Concomitant]
     Active Substance: ZINC
     Indication: Product used for unknown indication
     Dosage: EVERY EVENING
     Route: 048
  82. BIOTENE [GLUCOSE OXIDASE;LACTOPEROXIDASE] [Concomitant]
     Indication: Product used for unknown indication
     Dosage: MOISTURIZING MOUTH SPRAY, 1 SPRAYS, ORAL, EVERY 1 HR
  83. BUDESONIDE [Concomitant]
     Active Substance: BUDESONIDE
     Indication: Product used for unknown indication
     Dosage: 0.5 MG/2 ML INHALATION SUSPENSION
  84. NAYZILAM [Concomitant]
     Active Substance: MIDAZOLAM
     Indication: Product used for unknown indication
     Dosage: 5 MG/INH NASAL SPRAY
  85. NITROFURANTOIN [Concomitant]
     Active Substance: NITROFURANTOIN
     Indication: Product used for unknown indication
     Dosage: 25MG/5ML
  86. ONDANSETRON [Concomitant]
     Active Substance: ONDANSETRON
     Indication: Product used for unknown indication
     Dosage: 4 MG/5 ML ORAL SOLUTION 2 MG, J-TUBE, EVERY 6 HR
  87. SENNA ALEXANDRINA DRY EXTRACT [Concomitant]
     Indication: Product used for unknown indication
     Dosage: ) 8.8 MG/S ML ORAL SYRUP, 8.8 MG: 5 ML, J-TUBE, BID

REACTIONS (27)
  - Acute respiratory failure [Unknown]
  - Gastritis [Unknown]
  - Pyrexia [Unknown]
  - Hip surgery [Unknown]
  - Respiratory tract infection [Recovered/Resolved]
  - Urinary tract infection [Unknown]
  - Seizure [Not Recovered/Not Resolved]
  - Viral infection [Unknown]
  - Respiration abnormal [Unknown]
  - Pneumonitis [Unknown]
  - Feeding intolerance [Unknown]
  - Biliary tract disorder [Unknown]
  - Acute respiratory failure [Unknown]
  - Acute respiratory failure [Unknown]
  - Seizure [Not Recovered/Not Resolved]
  - Respiratory tract infection [Recovered/Resolved]
  - Nephrolithiasis [Not Recovered/Not Resolved]
  - Pulse absent [Recovered/Resolved]
  - Cyanosis [Recovered/Resolved]
  - Enterobacter infection [Recovered/Resolved]
  - Sepsis syndrome [Recovered/Resolved]
  - Tachycardia [Unknown]
  - Hypotension [Recovered/Resolved]
  - Lactic acidosis [Recovered/Resolved]
  - Cardiac arrest [Recovered/Resolved]
  - Seizure [Not Recovered/Not Resolved]
  - Pyrexia [Unknown]

NARRATIVE: CASE EVENT DATE: 20210601
